FAERS Safety Report 9096225 (Version 3)
Quarter: 2014Q1

REPORT INFORMATION
  Report Type: Spontaneous
  Country: US (occurrence: US)
  Receive Date: 20130207
  Receipt Date: 20140205
  Transmission Date: 20141002
  Serious: Yes (Hospitalization)
  Sender: FDA-Public Use
  Company Number: US-009507513-1302USA002848

PATIENT
  Sex: Female
  Weight: 90.7 kg

DRUGS (3)
  1. NUVARING [Suspect]
     Indication: MENSTRUAL DISORDER
     Dosage: 0.12MG-0.015 MG/24 HR, IN 3 WEEKS AND REMOVE 1 WEEK
     Route: 067
     Dates: start: 20120509, end: 20120630
  2. VENTOLIN (ALBUTEROL) [Concomitant]
     Indication: ASTHMA
     Dosage: 90 MICROGRAM, 1-2 PUFFS Q 4 HR PRN
     Route: 055
     Dates: start: 199810
  3. IBUPROFEN [Concomitant]
     Dosage: UNK, PRN

REACTIONS (5)
  - Intracranial venous sinus thrombosis [Recovered/Resolved]
  - Hypertension [Unknown]
  - Off label use [Unknown]
  - Fatigue [Unknown]
  - Drug ineffective [Unknown]
